FAERS Safety Report 25469372 (Version 1)
Quarter: 2025Q2

REPORT INFORMATION
  Report Type: Spontaneous
  Country: CA (occurrence: CA)
  Receive Date: 20250623
  Receipt Date: 20250623
  Transmission Date: 20250716
  Serious: Yes (Other)
  Sender: ANI
  Company Number: CA-ANIPHARMA-2025-CA-001994

PATIENT
  Age: 66 Year
  Sex: Male
  Weight: 95.71 kg

DRUGS (2)
  1. CANDESARTAN CILEXETIL [Suspect]
     Active Substance: CANDESARTAN CILEXETIL
     Indication: Hypertension
     Route: 048
  2. PANTOPRAZOLE MAGNESIUM [Concomitant]
     Active Substance: PANTOPRAZOLE MAGNESIUM

REACTIONS (2)
  - Abdominal pain [Unknown]
  - Nausea [Unknown]
